FAERS Safety Report 9869177 (Version 3)
Quarter: 2014Q1

REPORT INFORMATION
  Report Type: Report from Study
  Country: DE (occurrence: DE)
  Receive Date: 20140205
  Receipt Date: 20140303
  Transmission Date: 20141002
  Serious: Yes (Hospitalization, Disabling)
  Sender: FDA-Public Use
  Company Number: DE-BRISTOL-MYERS SQUIBB COMPANY-19393941

PATIENT
  Age: 49 Year
  Sex: Female

DRUGS (3)
  1. ABATACEPT SUBQ INJECTION 125MG/ML [Suspect]
     Indication: RHEUMATOID ARTHRITIS
     Route: 058
     Dates: start: 201211
  2. METHOTREXATE [Suspect]
     Dosage: 17JAN12-17JAN13?31JUL13-UNK?JUL2010 TO OCT2010?30AUG13-UNKNWN
     Dates: start: 20120117
  3. RITUXIMAB [Suspect]
     Dosage: 28JAN-26MAR10?20APR-15AUG11?30AUG11-UNK-1000 MG
     Dates: start: 20100128, end: 20110815

REACTIONS (4)
  - Osteoarthritis [Not Recovered/Not Resolved]
  - Joint dislocation [Not Recovered/Not Resolved]
  - Colitis [Unknown]
  - Anaemia [Unknown]
